FAERS Safety Report 18700970 (Version 1)
Quarter: 2021Q1

REPORT INFORMATION
  Report Type: Spontaneous
  Country: US (occurrence: US)
  Receive Date: 20210104
  Receipt Date: 20210104
  Transmission Date: 20210419
  Serious: Yes (Other)
  Sender: FDA-Public Use
  Company Number: None

PATIENT
  Age: 38 Year
  Sex: Male
  Weight: 113 kg

DRUGS (6)
  1. FENOFIBRATE 160MG [Concomitant]
     Dates: start: 20200401
  2. CALCIUM CARBONATE 600MG/VIT D 200IU [Concomitant]
     Dates: start: 20200401
  3. LOSARTAN 50MG [Concomitant]
     Active Substance: LOSARTAN
     Dates: start: 20200401
  4. MAGNESIUM OXIDE 400MG [Concomitant]
     Active Substance: MAGNESIUM OXIDE
     Dates: start: 20200401
  5. MONTELUKAST [Concomitant]
     Active Substance: MONTELUKAST SODIUM
     Dates: start: 20200401
  6. OMEPRAZOLE. [Suspect]
     Active Substance: OMEPRAZOLE
     Indication: GASTROOESOPHAGEAL REFLUX DISEASE
     Route: 048
     Dates: start: 20201229, end: 20210102

REACTIONS (2)
  - Gastrooesophageal reflux disease [None]
  - Product substitution issue [None]

NARRATIVE: CASE EVENT DATE: 20210101
